FAERS Safety Report 10094104 (Version 2)
Quarter: 2014Q2

REPORT INFORMATION
  Report Type: Spontaneous
  Country: JP (occurrence: JP)
  Receive Date: 20140422
  Receipt Date: 20140502
  Transmission Date: 20141212
  Serious: Yes (Hospitalization, Other)
  Sender: FDA-Public Use
  Company Number: JP-009507513-1404JPN010466

PATIENT
  Age: 47 Year
  Sex: Female

DRUGS (2)
  1. MARVELON 28 [Suspect]
     Indication: MENSTRUAL DISORDER
     Dosage: DAILY DOSAGE UNKNOWN
     Route: 048
     Dates: start: 201201, end: 20140326
  2. NORVASC [Concomitant]
     Indication: HYPERTENSION
     Dosage: 2.5 MG, QD
     Route: 048
     Dates: start: 201402, end: 2014

REACTIONS (6)
  - Cerebral haemorrhage [Recovered/Resolved]
  - Intracranial venous sinus thrombosis [Recovered/Resolved]
  - Anaemia [Recovered/Resolved]
  - Eye pain [Unknown]
  - Cataract operation [Unknown]
  - Drug prescribing error [Unknown]
